FAERS Safety Report 17040423 (Version 1)
Quarter: 2019Q4

REPORT INFORMATION
  Report Type: Spontaneous
  Country: US (occurrence: US)
  Receive Date: 20191117
  Receipt Date: 20191117
  Transmission Date: 20200122
  Serious: No
  Sender: FDA-Public Use
  Company Number: US-TORRENT-00008973

PATIENT
  Sex: Male

DRUGS (1)
  1. LOSARTAN. [Suspect]
     Active Substance: LOSARTAN
     Indication: PRODUCT USED FOR UNKNOWN INDICATION
     Dosage: 25 MG EVERY DAY IN MORNING AND STARTED TAKING THE MEDICATION A WEEK AND HALF AGO.
     Dates: start: 201906

REACTIONS (2)
  - Insomnia [Not Recovered/Not Resolved]
  - Vision blurred [Recovered/Resolved]

NARRATIVE: CASE EVENT DATE: 2019
